FAERS Safety Report 14133379 (Version 1)
Quarter: 2017Q4

REPORT INFORMATION
  Report Type: Report from Study
  Country: US (occurrence: US)
  Receive Date: 20171027
  Receipt Date: 20171027
  Transmission Date: 20180321
  Serious: No
  Sender: FDA-Public Use
  Company Number: US-THERATECHNOLOGIES, INC.-TH-2017-00328

PATIENT

DRUGS (13)
  1. FENOFIBRATE. [Concomitant]
     Active Substance: FENOFIBRATE
  2. COUMADIN [Concomitant]
     Active Substance: WARFARIN SODIUM
  3. NORVIR [Concomitant]
     Active Substance: RITONAVIR
  4. REYATAZ [Concomitant]
     Active Substance: ATAZANAVIR SULFATE
  5. TRUVADA [Concomitant]
     Active Substance: EMTRICITABINE\TENOFOVIR DISOPROXIL FUMARATE
  6. LISINOPRIL. [Concomitant]
     Active Substance: LISINOPRIL
  7. LEVOTHYROXINE. [Concomitant]
     Active Substance: LEVOTHYROXINE
  8. ACYCLOVIR. [Concomitant]
     Active Substance: ACYCLOVIR
  9. LIVALO [Concomitant]
     Active Substance: PITAVASTATIN CALCIUM
  10. EGRIFTA [Suspect]
     Active Substance: TESAMORELIN
     Dosage: UNK UNK, UNKNOWN
     Dates: start: 20171017
  11. PHENOBARBITAL. [Concomitant]
     Active Substance: PHENOBARBITAL
  12. SERTRALINE [Concomitant]
     Active Substance: SERTRALINE HYDROCHLORIDE
  13. LOMOTIL [Concomitant]
     Active Substance: ATROPINE SULFATE\DIPHENOXYLATE HYDROCHLORIDE

REACTIONS (1)
  - Dysgeusia [Not Recovered/Not Resolved]

NARRATIVE: CASE EVENT DATE: 20171017
